FAERS Safety Report 5216283-4 (Version None)
Quarter: 2006Q4

REPORT INFORMATION
  Report Type: 
  Country: None (occurrence: None)
  Receive Date: 20061122
  Receipt Date: 20060911
  Transmission Date: 20070319
  Serious: Yes (Other)
  Sender: FDA-Public Use
  Company Number: 2006099559

PATIENT
  Age: 72 Year
  Sex: Male
  Weight: 111.1313 kg

DRUGS (10)
  1. LIPITOR [Suspect]
     Indication: DIABETES MELLITUS NON-INSULIN-DEPENDENT
     Dosage: 80MG (80 MG, 1 IN 1 D)
     Dates: start: 20060101, end: 20060905
  2. LIPITOR [Suspect]
     Indication: HYPERCHOLESTEROLAEMIA
     Dosage: 80MG (80 MG, 1 IN 1 D)
     Dates: start: 20060101, end: 20060905
  3. LIPITOR [Suspect]
     Indication: HYPERTENSION
     Dosage: 80MG (80 MG, 1 IN 1 D)
     Dates: start: 20060101, end: 20060905
  4. LIPITOR [Suspect]
     Indication: RENAL FAILURE CHRONIC
     Dosage: 80MG (80 MG, 1 IN 1 D)
     Dates: start: 20060101, end: 20060905
  5. FUROSEMIDE [Concomitant]
  6. HYDRALAZINE HCL [Concomitant]
  7. COLCHICINE (COLCHICINE) [Concomitant]
  8. ALLOPURINOL [Concomitant]
  9. POTASSIUM CHLORIDE [Concomitant]
  10. NOVOLIN 70/30 [Concomitant]

REACTIONS (5)
  - BLOOD CREATINE INCREASED [None]
  - BLOOD CREATINE PHOSPHOKINASE INCREASED [None]
  - MUSCULAR WEAKNESS [None]
  - RENAL FAILURE [None]
  - RHABDOMYOLYSIS [None]
